FAERS Safety Report 25581774 (Version 1)
Quarter: 2025Q3

REPORT INFORMATION
  Report Type: Spontaneous
  Country: CN (occurrence: CN)
  Receive Date: 20250719
  Receipt Date: 20250719
  Transmission Date: 20251020
  Serious: Yes (Other)
  Sender: HETERO
  Company Number: CN-AMAROX PHARMA-HET2025CN04120

PATIENT
  Sex: Male

DRUGS (7)
  1. VALGANCICLOVIR [Suspect]
     Active Substance: VALGANCICLOVIR
     Indication: Product used for unknown indication
     Route: 048
     Dates: start: 20250711
  2. OMEPRAZOLE [Concomitant]
     Active Substance: OMEPRAZOLE
     Indication: Product used for unknown indication
     Route: 065
     Dates: start: 20250711
  3. PANCREATIN [Concomitant]
     Active Substance: PANCRELIPASE
     Indication: Product used for unknown indication
     Route: 065
     Dates: start: 20250711
  4. ENTECAVIR [Concomitant]
     Active Substance: ENTECAVIR
     Indication: Product used for unknown indication
     Route: 065
     Dates: start: 20250711
  5. MYCOPHENOLIC ACID [Concomitant]
     Active Substance: MYCOPHENOLIC ACID
     Indication: Product used for unknown indication
     Route: 065
     Dates: start: 20250711
  6. TACROLIMUS [Concomitant]
     Active Substance: TACROLIMUS
     Indication: Product used for unknown indication
     Route: 065
     Dates: start: 20250711
  7. SIROLIMUS [Concomitant]
     Active Substance: SIROLIMUS
     Indication: Product used for unknown indication
     Route: 065
     Dates: start: 20250711

REACTIONS (8)
  - Syncope [Unknown]
  - Abdominal discomfort [Unknown]
  - Abdominal distension [Unknown]
  - Pyrexia [Unknown]
  - Discomfort [Unknown]
  - Flatulence [Unknown]
  - Aphasia [Unknown]
  - Headache [Unknown]
